FAERS Safety Report 8986607 (Version 1)
Quarter: 2012Q4

REPORT INFORMATION
  Report Type: 
  Country: FR (occurrence: FR)
  Receive Date: 20121226
  Receipt Date: 20121226
  Transmission Date: 20130627
  Serious: Yes (Other)
  Sender: FDA-Public Use
  Company Number: FR-ROCHE-1174047

PATIENT
  Age: 82 Year
  Sex: Female

DRUGS (8)
  1. LUCENTIS [Suspect]
     Indication: AGE-RELATED MACULAR DEGENERATION
     Route: 050
     Dates: start: 20120702
  2. LUCENTIS [Suspect]
     Route: 050
     Dates: start: 20120803
  3. LUCENTIS [Suspect]
     Route: 050
     Dates: start: 20120913
  4. CORTANCYL [Concomitant]
  5. FLECAINE [Concomitant]
  6. KARDEGIC [Concomitant]
  7. OMEPRAZOLE [Concomitant]
  8. TRANXENE [Concomitant]
     Route: 065

REACTIONS (2)
  - Scotoma [Unknown]
  - Urinary tract infection [Recovered/Resolved]
